FAERS Safety Report 5119140-7 (Version None)
Quarter: 2006Q3

REPORT INFORMATION
  Report Type: 
  Country: None (occurrence: None)
  Receive Date: 20060929
  Receipt Date: 20060929
  Transmission Date: 20061208
  Serious: Yes (Death)
  Sender: FDA-Public Use
  Company Number: None

PATIENT
  Age: 21 Year
  Sex: Female
  Weight: 49.8957 kg

DRUGS (1)
  1. GEODON [Suspect]

REACTIONS (1)
  - COMPLETED SUICIDE [None]
